FAERS Safety Report 12508432 (Version 4)
Quarter: 2016Q4

REPORT INFORMATION
  Report Type: Spontaneous
  Country: US (occurrence: US)
  Receive Date: 20160629
  Receipt Date: 20161214
  Transmission Date: 20170207
  Serious: Yes (Other)
  Sender: FDA-Public Use
  Company Number: US-SA-2016SA101995

PATIENT
  Age: 65 Year
  Sex: Female

DRUGS (10)
  1. GRALISE [Concomitant]
     Active Substance: GABAPENTIN
  2. NALTREXONE HYDROCHLORIDE. [Concomitant]
     Active Substance: NALTREXONE HYDROCHLORIDE
  3. NAMENDA [Concomitant]
     Active Substance: MEMANTINE HYDROCHLORIDE
  4. NUVIGIL [Concomitant]
     Active Substance: ARMODAFINIL
  5. COUMADIN [Concomitant]
     Active Substance: WARFARIN SODIUM
  6. CELEBREX [Concomitant]
     Active Substance: CELECOXIB
  7. BACLOFEN. [Concomitant]
     Active Substance: BACLOFEN
  8. AMPYRA [Concomitant]
     Active Substance: DALFAMPRIDINE
  9. AUBAGIO [Suspect]
     Active Substance: TERIFLUNOMIDE
     Indication: MULTIPLE SCLEROSIS
     Route: 048
  10. TOPROL XL [Concomitant]
     Active Substance: METOPROLOL SUCCINATE

REACTIONS (8)
  - Gait disturbance [Unknown]
  - Cystitis [Not Recovered/Not Resolved]
  - Diarrhoea [Unknown]
  - Fall [Unknown]
  - Primary progressive multiple sclerosis [Unknown]
  - Tooth disorder [Unknown]
  - Urinary tract infection [Unknown]
  - Bladder dysfunction [Not Recovered/Not Resolved]

NARRATIVE: CASE EVENT DATE: 201602
